FAERS Safety Report 9867103 (Version 3)
Quarter: 2017Q4

REPORT INFORMATION
  Report Type: Report from Study
  Country: US (occurrence: US)
  Receive Date: 20140204
  Receipt Date: 20171128
  Transmission Date: 20180321
  Serious: Yes (Other)
  Sender: FDA-Public Use
  Company Number: US-ROCHE-1338524

PATIENT
  Sex: Male
  Weight: 93.07 kg

DRUGS (6)
  1. NUTROPIN AQ [Suspect]
     Active Substance: SOMATROPIN
     Indication: GROWTH HORMONE DEFICIENCY
     Route: 058
     Dates: start: 1998, end: 20160727
  2. NASONEX [Concomitant]
     Active Substance: MOMETASONE FUROATE
     Route: 045
  3. ALBUTEROL. [Concomitant]
     Active Substance: ALBUTEROL
     Route: 065
  4. SYMBICORT [Concomitant]
     Active Substance: BUDESONIDE\FORMOTEROL FUMARATE DIHYDRATE
     Dosage: FORM STRENGTH: 160-4.5 MCG/ACT INH
     Route: 065
  5. NUTROPIN AQ [Suspect]
     Active Substance: SOMATROPIN
     Route: 058
  6. GENOTROPIN [Concomitant]
     Active Substance: SOMATROPIN
     Indication: GROWTH HORMONE DEFICIENCY
     Route: 058

REACTIONS (14)
  - Seizure [Unknown]
  - Cognitive disorder [Unknown]
  - Amnesia [Unknown]
  - Seasonal allergy [Unknown]
  - Asthenia [Unknown]
  - Optic atrophy [Unknown]
  - Hyperlipidaemia [Unknown]
  - Headache [Unknown]
  - Primary hypothyroidism [Not Recovered/Not Resolved]
  - Lethargy [Unknown]
  - Type V hyperlipidaemia [Unknown]
  - Goitre [Not Recovered/Not Resolved]
  - Vitamin D deficiency [Unknown]
  - Learning disability [Unknown]
